FAERS Safety Report 5774297-X (Version None)
Quarter: 2008Q2

REPORT INFORMATION
  Report Type: 
  Country: None (occurrence: None)
  Receive Date: 20080616
  Receipt Date: 20080603
  Transmission Date: 20081010
  Serious: Yes (Hospitalization)
  Sender: FDA-Public Use
  Company Number: CN-NOVOPROD-274790

PATIENT
  Age: 38 Year
  Sex: Male
  Weight: 55 kg

DRUGS (1)
  1. NOVOLIN R [Suspect]
     Indication: TYPE 1 DIABETES MELLITUS
     Dosage: MORNING 16; EVENING 14

REACTIONS (3)
  - BLOOD GLUCOSE INCREASED [None]
  - DIABETIC NEPHROPATHY [None]
  - REFLUX OESOPHAGITIS [None]
